FAERS Safety Report 7666046 (Version 4)
Quarter: 2014Q1

REPORT INFORMATION
  Report Type: Spontaneous
  Country: US (occurrence: US)
  Receive Date: 20101112
  Receipt Date: 20140115
  Transmission Date: 20141002
  Serious: Yes (Hospitalization)
  Sender: FDA-Public Use
  Company Number: US-BAYER-201040529NA

PATIENT
  Age: 25 Year
  Sex: Female
  Weight: 81.63 kg

DRUGS (5)
  1. YASMIN [Suspect]
     Indication: CONTRACEPTION
     Dosage: UNK
     Route: 048
     Dates: start: 200406, end: 200602
  2. PREVACID [Concomitant]
     Indication: DYSPEPSIA
     Dosage: UNK UNK, QD
     Route: 048
     Dates: start: 2005, end: 2006
  3. TYLENOL [PARACETAMOL] [Concomitant]
     Indication: ABDOMINAL PAIN UPPER
     Dosage: UNK
     Route: 048
     Dates: start: 20060212
  4. TYLENOL [PARACETAMOL] [Concomitant]
     Indication: PYREXIA
  5. EMETROL [Concomitant]
     Indication: NAUSEA
     Dosage: UNK
     Route: 048
     Dates: start: 20060212

REACTIONS (6)
  - Cholecystitis chronic [None]
  - Cholelithiasis [None]
  - Cholecystectomy [None]
  - Pain [None]
  - Abdominal pain upper [None]
  - Weight increased [None]
